FAERS Safety Report 14909067 (Version 1)
Quarter: 2018Q2

REPORT INFORMATION
  Report Type: Spontaneous
  Country: US (occurrence: US)
  Receive Date: 20180430
  Receipt Date: 20180430
  Transmission Date: 20180711
  Serious: No
  Sender: FDA-Public Use
  Company Number: None

PATIENT
  Sex: Female

DRUGS (1)
  1. METFORMIN [Suspect]
     Active Substance: METFORMIN HYDROCHLORIDE

REACTIONS (6)
  - Abdominal discomfort [None]
  - Skin odour abnormal [None]
  - Product odour abnormal [None]
  - Flatulence [None]
  - Diarrhoea [None]
  - Product substitution issue [None]
